FAERS Safety Report 5803473-2 (Version None)
Quarter: 2008Q3

REPORT INFORMATION
  Report Type: 
  Country: None (occurrence: None)
  Receive Date: 20080708
  Receipt Date: 20080627
  Transmission Date: 20090109
  Serious: Yes (Other)
  Sender: FDA-Public Use
  Company Number: PHHY2008BR12704

PATIENT
  Age: 52 Year
  Sex: Female

DRUGS (1)
  1. ZELMAC [Suspect]
     Dosage: 1 TABLET MORNING + 1 TABLET NIGHT
     Route: 048
     Dates: start: 20080422

REACTIONS (4)
  - ANGINA PECTORIS [None]
  - HYPERHIDROSIS [None]
  - HYPERTENSION [None]
  - MALAISE [None]
